FAERS Safety Report 5382205-9 (Version None)
Quarter: 2007Q3

REPORT INFORMATION
  Report Type: 
  Country: None (occurrence: None)
  Receive Date: 20070709
  Receipt Date: 20070626
  Transmission Date: 20080115
  Serious: Yes (Other)
  Sender: FDA-Public Use
  Company Number: FR-JNJFOC-20070606699

PATIENT
  Sex: Female

DRUGS (5)
  1. EPITOMAX [Suspect]
     Route: 048
  2. EPITOMAX [Suspect]
     Indication: EPILEPSY
     Route: 048
  3. TEGRETOL [Concomitant]
  4. URBANYL [Concomitant]
  5. SPECIAFOLDINE [Concomitant]

REACTIONS (2)
  - DRUG EXPOSURE DURING PREGNANCY [None]
  - PREMATURE BABY [None]
